FAERS Safety Report 9405081 (Version 1)
Quarter: 2013Q3

REPORT INFORMATION
  Report Type: Spontaneous
  Country: DE (occurrence: DE)
  Receive Date: 20130717
  Receipt Date: 20130717
  Transmission Date: 20140515
  Serious: Yes (Other)
  Sender: FDA-Public Use
  Company Number: DE-TEVA-418114GER

PATIENT
  Sex: 0

DRUGS (2)
  1. COPAXONE [Suspect]
     Indication: MULTIPLE SCLEROSIS
     Dates: end: 2011
  2. COPAXONE [Suspect]
     Dates: start: 2013

REACTIONS (2)
  - Multiple sclerosis relapse [Unknown]
  - Secondary progressive multiple sclerosis [Unknown]
